FAERS Safety Report 10404147 (Version 1)
Quarter: 2014Q1

REPORT INFORMATION
  Report Type: Spontaneous
  Country: US (occurrence: None)
  Receive Date: 20130927
  Receipt Date: 20130927
  Transmission Date: 20141002
  Serious: Yes (Death)
  Sender: FDA-Public Use
  Company Number: RB-49359-2013

PATIENT
  Sex: Male

DRUGS (1)
  1. SUBOXONE 8 MG [Suspect]
     Indication: SUBSTANCE USE
     Dosage: SUBOXONE FILM UNKNOWN
     Dates: start: 20120914, end: 20120914

REACTIONS (2)
  - Substance abuse [None]
  - Accidental overdose [None]
